FAERS Safety Report 7337285-8 (Version None)
Quarter: 2011Q1

REPORT INFORMATION
  Report Type: 
  Country: None (occurrence: None)
  Receive Date: 20110222
  Receipt Date: 20110208
  Transmission Date: 20110831
  Serious: No
  Sender: FDA-Public Use
  Company Number: TMDP-NO-1101S-0001

PATIENT
  Sex: Male

DRUGS (2)
  1. TECHNETIUM (TC99M) GENERATOR (MANF. UNKNOWN) (SODIUM PERTECHNETATE TC9 [Concomitant]
  2. TECHNETIUM TC 99M MPI MDP [Suspect]
     Indication: METASTASES TO BONE
     Dosage: 750 MBQ, SINGLE DOSE
     Dates: start: 20101025, end: 20101025

REACTIONS (3)
  - VERTIGO [None]
  - TINNITUS [None]
  - CONDITION AGGRAVATED [None]
